FAERS Safety Report 25741525 (Version 1)
Quarter: 2025Q3

REPORT INFORMATION
  Report Type: Spontaneous
  Country: US (occurrence: None)
  Receive Date: 20250829
  Receipt Date: 20250829
  Transmission Date: 20251021
  Serious: Yes (Hospitalization)
  Sender: FDA-CTU
  Company Number: None

PATIENT
  Age: 76 Year
  Sex: Female
  Weight: 59 kg

DRUGS (4)
  1. TIGECYCLINE [Suspect]
     Active Substance: TIGECYCLINE
     Indication: Skin infection
     Dosage: FREQUENCY : TWICE A DAY;?
     Route: 042
     Dates: start: 20250824, end: 20250826
  2. VANCOMYCIN [Suspect]
     Active Substance: VANCOMYCIN
  3. CEFEPIME [Suspect]
     Active Substance: CEFEPIME HYDROCHLORIDE
  4. METRONIDAZOLE [Suspect]
     Active Substance: METRONIDAZOLE

REACTIONS (5)
  - Rash maculo-papular [None]
  - Eosinophilia [None]
  - Mental status changes [None]
  - Trichoglossia [None]
  - Therapy change [None]

NARRATIVE: CASE EVENT DATE: 20250827
